FAERS Safety Report 9647571 (Version 2)
Quarter: 2013Q4

REPORT INFORMATION
  Report Type: Spontaneous
  Country: GB (occurrence: GB)
  Receive Date: 20131028
  Receipt Date: 20131111
  Transmission Date: 20140711
  Serious: Yes (Other)
  Sender: FDA-Public Use
  Company Number: GB-BIOGENIDEC-2013BI101108

PATIENT
  Age: 58 Year
  Sex: Female

DRUGS (3)
  1. TYSABRI [Suspect]
     Indication: PRODUCT USED FOR UNKNOWN INDICATION
     Route: 042
     Dates: start: 20111102, end: 20130918
  2. BACLOFEN [Concomitant]
  3. GABAPENTIN [Concomitant]

REACTIONS (2)
  - Breast cancer recurrent [Not Recovered/Not Resolved]
  - Intraductal proliferative breast lesion [Not Recovered/Not Resolved]
